FAERS Safety Report 12217337 (Version 1)
Quarter: 2016Q1

REPORT INFORMATION
  Report Type: Spontaneous
  Country: US (occurrence: US)
  Receive Date: 20160329
  Receipt Date: 20160329
  Transmission Date: 20160526
  Serious: Yes (Other)
  Sender: FDA-Public Use
  Company Number: US-GLAXOSMITHKLINE-US2016GSK041820

PATIENT
  Age: 66 Year
  Sex: Female

DRUGS (2)
  1. ADVAIR DISKUS [Suspect]
     Active Substance: FLUTICASONE PROPIONATE\SALMETEROL XINAFOATE
     Indication: LUNG DISORDER
     Dosage: UNK
     Dates: start: 199908
  2. ADVAIR DISKUS [Suspect]
     Active Substance: FLUTICASONE PROPIONATE\SALMETEROL XINAFOATE
     Indication: PNEUMOTHORAX

REACTIONS (5)
  - Oxygen saturation decreased [Unknown]
  - Malaise [Unknown]
  - Lung disorder [Unknown]
  - Influenza like illness [Unknown]
  - Pneumonia [Unknown]

NARRATIVE: CASE EVENT DATE: 201601
